APPROVED DRUG PRODUCT: NIPENT
Active Ingredient: PENTOSTATIN
Strength: 10MG/VIAL
Dosage Form/Route: INJECTABLE;INJECTION
Application: N020122 | Product #001 | TE Code: AP
Applicant: HOSPIRA INC
Approved: Oct 11, 1991 | RLD: Yes | RS: Yes | Type: RX